FAERS Safety Report 5843341-3 (Version None)
Quarter: 2008Q3

REPORT INFORMATION
  Report Type: 
  Country: None (occurrence: None)
  Receive Date: 20080813
  Receipt Date: 20080812
  Transmission Date: 20090109
  Serious: Yes (Other)
  Sender: FDA-Public Use
  Company Number: A0741033A

PATIENT
  Age: 48 Year
  Sex: Female
  Weight: 94.1 kg

DRUGS (1)
  1. ALLI [Suspect]
     Indication: DRUG USE FOR UNKNOWN INDICATION
     Route: 048
     Dates: start: 20071001

REACTIONS (5)
  - ARTHROPATHY [None]
  - ASTHENIA [None]
  - GENITAL DISORDER FEMALE [None]
  - MALAISE [None]
  - MOBILITY DECREASED [None]
